FAERS Safety Report 12703670 (Version 1)
Quarter: 2016Q3

REPORT INFORMATION
  Report Type: Spontaneous
  Country: CH (occurrence: CH)
  Receive Date: 20160831
  Receipt Date: 20160831
  Transmission Date: 20161109
  Serious: Yes (Hospitalization, Other)
  Sender: FDA-Public Use
  Company Number: CH-JNJFOC-20160826223

PATIENT
  Age: 83 Year
  Sex: Female

DRUGS (2)
  1. DIPIPERON [Suspect]
     Active Substance: PIPAMPERONE
     Indication: DELIRIUM
     Route: 048
     Dates: start: 2016
  2. HALDOL [Suspect]
     Active Substance: HALOPERIDOL
     Indication: DELIRIUM
     Dosage: 65 GTT
     Route: 048

REACTIONS (4)
  - Hypothermia [Recovered/Resolved]
  - Tachycardia [Recovered/Resolved]
  - Hyperhidrosis [Not Recovered/Not Resolved]
  - Somnolence [Recovered/Resolved]

NARRATIVE: CASE EVENT DATE: 20160604
